FAERS Safety Report 7688046-1 (Version None)
Quarter: 2011Q3

REPORT INFORMATION
  Report Type: 
  Country: None (occurrence: None)
  Receive Date: 20110817
  Receipt Date: 20110811
  Transmission Date: 20111222
  Serious: No
  Sender: FDA-Public Use
  Company Number: US-PFIZER INC-2011072796

PATIENT
  Sex: Female
  Weight: 59.864 kg

DRUGS (18)
  1. VITAMIN D [Concomitant]
     Dosage: UNK
  2. BETAXOLOL [Concomitant]
     Dosage: UNK
  3. GENOTROPIN [Suspect]
     Dosage: 0.4 MG, 1X/DAY
     Route: 058
  4. CORTEF [Concomitant]
     Dosage: 20 MG, UNK
  5. HOMOCYSTEINE THIOLACTONE [Concomitant]
  6. THYROID TAB [Concomitant]
     Dosage: 30 MG, UNK
  7. EPINEPHRINE [Concomitant]
  8. BETIMOL [Concomitant]
     Dosage: 0.25 %, UNK
  9. ZINC [Concomitant]
     Dosage: 30 MG, UNK
  10. MILK THISTLE [Concomitant]
     Dosage: UNK
  11. ENTOCORT EC [Concomitant]
     Dosage: 3 MG, 1X/DAY
  12. HYDROCORTISONE [Concomitant]
     Dosage: 2.5 MG, IN PM
  13. MAGNESIUM GLUCEPTATE [Concomitant]
     Dosage: 200 MG, UNK
  14. VITAMIN B COMPLEX CAP [Concomitant]
     Dosage: UNK
  15. IMMUNOGLOBULIN HUMAN NORMAL [Concomitant]
     Dosage: UNK MG, UNK
  16. CO-Q-10 [Concomitant]
     Dosage: 100 MG, UNK
  17. LOSARTAN POTASSIUM [Concomitant]
     Dosage: 25 MG, UNK
  18. PROBIOTICA [Concomitant]
     Dosage: UNK

REACTIONS (9)
  - WEIGHT DECREASED [None]
  - VOMITING [None]
  - PRURITUS [None]
  - SWELLING FACE [None]
  - OEDEMA PERIPHERAL [None]
  - BLOOD PRESSURE INCREASED [None]
  - ARTHRALGIA [None]
  - INSOMNIA [None]
  - ABDOMINAL PAIN UPPER [None]
